FAERS Safety Report 5365940-8 (Version None)
Quarter: 2007Q2

REPORT INFORMATION
  Report Type: 
  Country: None (occurrence: None)
  Receive Date: 20070611
  Receipt Date: 20070119
  Transmission Date: 20071010
  Serious: Yes (Death, Other)
  Sender: FDA-Public Use
  Company Number: USA-2007-0026268

PATIENT
  Age: 20 Year
  Sex: Male
  Weight: 84.4 kg

DRUGS (6)
  1. OXYCODONE HCL [Suspect]
     Indication: DRUG USE FOR UNKNOWN INDICATION
  2. ALCOHOL (ETHANOL) [Suspect]
     Indication: ALCOHOL USE
     Dosage: ORAL
     Route: 048
  3. BUTALBITAL [Suspect]
     Indication: DRUG USE FOR UNKNOWN INDICATION
  4. CHLORZOXAZONE [Suspect]
     Indication: DRUG USE FOR UNKNOWN INDICATION
  5. CAFFEINE CITRATE [Suspect]
     Indication: DRUG USE FOR UNKNOWN INDICATION
  6. NICOTINE [Suspect]
     Indication: SMOKER

REACTIONS (6)
  - HEART RATE DECREASED [None]
  - MULTIPLE DRUG OVERDOSE ACCIDENTAL [None]
  - PULMONARY CONGESTION [None]
  - PULMONARY OEDEMA [None]
  - RESPIRATORY RATE DECREASED [None]
  - SUBSTANCE ABUSE [None]
